FAERS Safety Report 16876600 (Version 3)
Quarter: 2019Q4

REPORT INFORMATION
  Report Type: Report from Study
  Country: US (occurrence: US)
  Receive Date: 20191002
  Receipt Date: 20191112
  Transmission Date: 20200122
  Serious: Yes (Hospitalization)
  Sender: FDA-Public Use
  Company Number: US-ROCHE-2423791

PATIENT
  Age: 67 Year
  Sex: Female

DRUGS (13)
  1. PEGPH20 [Suspect]
     Active Substance: PEGVORHYALURONIDASE ALFA
     Route: 042
     Dates: start: 20190924
  2. POTASSIUM [Concomitant]
     Active Substance: POTASSIUM
  3. METOPROLOL. [Concomitant]
     Active Substance: METOPROLOL
  4. CISPLATIN. [Suspect]
     Active Substance: CISPLATIN
     Indication: GALLBLADDER CANCER
     Dosage: MOST RECENT DOSE PRIOR TO ADVERSE EVENTS: 18/SEP/2019- C1D1
     Route: 042
     Dates: start: 20190911
  5. VITAMIN D3 [Concomitant]
     Active Substance: CHOLECALCIFEROL
  6. GEMCITABINE. [Suspect]
     Active Substance: GEMCITABINE
     Indication: GALLBLADDER CANCER
     Dosage: MOST RECENT DOSE PRIOR TO ADVERSE EVENTS: 18/SEP/2019- C1D1
     Route: 042
     Dates: start: 20190911
  7. LOVENOX [Concomitant]
     Active Substance: ENOXAPARIN SODIUM
     Route: 065
     Dates: end: 20190920
  8. CIPROFLOXACIN. [Concomitant]
     Active Substance: CIPROFLOXACIN
  9. HYDROCHLOROTHIAZIDE. [Concomitant]
     Active Substance: HYDROCHLOROTHIAZIDE
  10. ATEZOLIZUMAB. [Suspect]
     Active Substance: ATEZOLIZUMAB
     Indication: GALLBLADDER CANCER
     Dosage: MOST RECENT DOSE PRIOR TO ADVERSE EVENTS: 10/SEP/2019
     Route: 042
     Dates: start: 20190910
  11. PEGPH20 [Suspect]
     Active Substance: PEGVORHYALURONIDASE ALFA
     Indication: GALLBLADDER CANCER
     Dosage: MOST RECENT DOSE PRIOR TO ADVERSE EVENTS: 13/SEP/2019
     Route: 042
     Dates: start: 20190910
  12. PEGPH20 [Suspect]
     Active Substance: PEGVORHYALURONIDASE ALFA
     Route: 042
     Dates: end: 20190920
  13. LOVENOX [Concomitant]
     Active Substance: ENOXAPARIN SODIUM
     Route: 065
     Dates: start: 20190924

REACTIONS (3)
  - Thrombocytopenia [Recovered/Resolved]
  - Diarrhoea [Recovered/Resolved]
  - Chills [Recovered/Resolved]

NARRATIVE: CASE EVENT DATE: 20190918
